FAERS Safety Report 4660332-9 (Version None)
Quarter: 2005Q2

REPORT INFORMATION
  Report Type: 
  Country: None (occurrence: None)
  Receive Date: 20050512
  Receipt Date: 20050506
  Transmission Date: 20051028
  Serious: Yes (Disabling)
  Sender: FDA-Public Use
  Company Number: US-MERCK-0505USA00878

PATIENT
  Sex: Male

DRUGS (2)
  1. VIOXX [Suspect]
     Route: 048
     Dates: start: 20010101, end: 20020105
  2. VIOXX [Suspect]
     Route: 048
     Dates: start: 20020106, end: 20041001

REACTIONS (2)
  - INJURY [None]
  - MYOCARDIAL INFARCTION [None]
